FAERS Safety Report 17192922 (Version 1)
Quarter: 2019Q4

REPORT INFORMATION
  Report Type: Spontaneous
  Country: US (occurrence: US)
  Receive Date: 20191223
  Receipt Date: 20191223
  Transmission Date: 20200122
  Serious: No
  Sender: FDA-Public Use
  Company Number: US-SA-2019SA345655

PATIENT
  Sex: Male

DRUGS (1)
  1. DUPIXENT [Suspect]
     Active Substance: DUPILUMAB
     Indication: DERMATITIS ATOPIC
     Dosage: 2 ML, QOW (2 ML UNDER THE SKIN EVERY 14 DAYS)
     Route: 058
     Dates: start: 201909, end: 2019

REACTIONS (3)
  - Drug ineffective [Unknown]
  - Dermatitis atopic [Unknown]
  - Dry eye [Unknown]

NARRATIVE: CASE EVENT DATE: 2019
